FAERS Safety Report 13743092 (Version 1)
Quarter: 2017Q3

REPORT INFORMATION
  Report Type: Spontaneous
  Country: JP (occurrence: JP)
  Receive Date: 20170711
  Receipt Date: 20170711
  Transmission Date: 20171127
  Serious: Yes (Other)
  Sender: FDA-Public Use
  Company Number: PHHY2012JP074139

PATIENT
  Age: 73 Year
  Sex: Female
  Weight: 50 kg

DRUGS (8)
  1. TAPROS [Concomitant]
     Active Substance: TAFLUPROST
     Indication: OCULAR HYPERTENSION
     Dates: start: 20110630
  2. METHYCOBAL [Concomitant]
     Active Substance: METHYLCOBALAMIN
     Route: 048
  3. ALOSENN [Concomitant]
     Active Substance: SENNA LEAF
     Route: 048
  4. MAGLAX [Concomitant]
     Active Substance: MAGNESIUM OXIDE
  5. JUVELA [Concomitant]
     Active Substance: .ALPHA.-TOCOPHEROL\RETINOL
  6. LIPITOR [Concomitant]
     Active Substance: ATORVASTATIN CALCIUM
     Route: 048
  7. MIKELAN LA 2% [Suspect]
     Active Substance: CARTEOLOL HYDROCHLORIDE
     Indication: ANGLE CLOSURE GLAUCOMA
     Dosage: 2 GTT, QD
     Route: 047
     Dates: start: 20110915, end: 20120119
  8. NOVORAPID [Concomitant]
     Active Substance: INSULIN ASPART
     Indication: DIABETES MELLITUS

REACTIONS (4)
  - Blood glucose increased [Unknown]
  - Glycosylated haemoglobin increased [Unknown]
  - Muscle twitching [Recovered/Resolved]
  - Muscle spasms [Recovered/Resolved]

NARRATIVE: CASE EVENT DATE: 20110923
